FAERS Safety Report 16889558 (Version 1)
Quarter: 2019Q4

REPORT INFORMATION
  Report Type: Spontaneous
  Country: US (occurrence: US)
  Receive Date: 20191007
  Receipt Date: 20191007
  Transmission Date: 20200122
  Serious: No
  Sender: FDA-Public Use
  Company Number: US-TEVA-2019-US-1118746

PATIENT
  Age: 52 Year
  Sex: Female

DRUGS (2)
  1. GABAPENTIN. [Suspect]
     Active Substance: GABAPENTIN
     Indication: BURNING FEET SYNDROME
     Route: 048
  2. CAPSAICIN. [Suspect]
     Active Substance: CAPSAICIN
     Indication: BURNING FEET SYNDROME
     Route: 061

REACTIONS (1)
  - Drug ineffective [Unknown]
